FAERS Safety Report 9468097 (Version 2)
Quarter: 2013Q3

REPORT INFORMATION
  Report Type: Spontaneous
  Country: CO (occurrence: CO)
  Receive Date: 20130821
  Receipt Date: 20130821
  Transmission Date: 20140515
  Serious: Yes (Other)
  Sender: FDA-Public Use
  Company Number: CO-PFIZER INC-2013235758

PATIENT
  Age: 34 Year
  Sex: Female
  Weight: 53 kg

DRUGS (9)
  1. LYRICA [Suspect]
     Indication: ANXIETY
     Dosage: 75 MG, 1X/DAY
     Route: 048
     Dates: start: 201307
  2. VITAMIN E [Concomitant]
     Indication: FATIGUE
     Dosage: UNK
     Route: 048
     Dates: start: 201306
  3. VITAMIN E [Concomitant]
     Indication: UNDERWEIGHT
  4. OMEGA 3 [Concomitant]
     Indication: FATIGUE
     Dosage: UNK
     Route: 048
     Dates: start: 201306
  5. OMEGA 3 [Concomitant]
     Indication: UNDERWEIGHT
  6. CHLOROPHYLL [Concomitant]
     Indication: FATIGUE
     Dosage: UNK
     Route: 048
     Dates: start: 201306
  7. CHLOROPHYLL [Concomitant]
     Indication: UNDERWEIGHT
  8. SOYA LECITHIN [Concomitant]
     Indication: FATIGUE
     Dosage: UNK
     Route: 048
     Dates: start: 201306
  9. SOYA LECITHIN [Concomitant]
     Indication: UNDERWEIGHT

REACTIONS (5)
  - Helicobacter gastritis [Unknown]
  - Insomnia [Unknown]
  - Abdominal discomfort [Unknown]
  - Nausea [Unknown]
  - Weight decreased [Unknown]
